FAERS Safety Report 24390100 (Version 2)
Quarter: 2024Q4

REPORT INFORMATION
  Report Type: Spontaneous
  Country: JP (occurrence: JP)
  Receive Date: 20241003
  Receipt Date: 20241126
  Transmission Date: 20250114
  Serious: Yes (Hospitalization, Other)
  Sender: BRISTOL-MYERS SQUIBB COMPANY
  Company Number: JP-ONO-2024JP014463

PATIENT
  Age: 65 Year
  Sex: Female
  Weight: 32.8 kg

DRUGS (1)
  1. OPDIVO [Suspect]
     Active Substance: NIVOLUMAB
     Indication: Oesophageal carcinoma
     Dosage: DOSAGE REGIMEN: 240 MG (05-FEB-2024, 19-FEB-2024, 07-MAR-2024, 21-MAR-2024)
     Route: 041
     Dates: start: 20240122, end: 20240404

REACTIONS (2)
  - Pneumonia aspiration [Recovering/Resolving]
  - Neuropathy peripheral [Recovering/Resolving]

NARRATIVE: CASE EVENT DATE: 20240404
